FAERS Safety Report 20641291 (Version 2)
Quarter: 2022Q1

REPORT INFORMATION
  Report Type: Spontaneous
  Country: US (occurrence: US)
  Receive Date: 20220328
  Receipt Date: 20220329
  Transmission Date: 20220423
  Serious: Yes (Hospitalization, Other)
  Sender: FDA-Public Use
  Company Number: US-JNJFOC-20220341364

PATIENT
  Age: 66 Year
  Sex: Male
  Weight: 104.42 kg

DRUGS (2)
  1. STELARA [Suspect]
     Active Substance: USTEKINUMAB
     Indication: Psoriasis
     Route: 058
  2. METOPROLOL SUCCINATE [Concomitant]
     Active Substance: METOPROLOL SUCCINATE
     Indication: Blood pressure measurement

REACTIONS (3)
  - Pancreatitis acute [Unknown]
  - Hepatic cirrhosis [Unknown]
  - Atrioventricular block second degree [Unknown]

NARRATIVE: CASE EVENT DATE: 20200101
